FAERS Safety Report 5211461-2 (Version None)
Quarter: 2006Q4

REPORT INFORMATION
  Report Type: 
  Country: None (occurrence: None)
  Receive Date: 20061115
  Receipt Date: 20060816
  Transmission Date: 20070319
  Serious: No
  Sender: FDA-Public Use
  Company Number: 200617373US

PATIENT
  Sex: Female

DRUGS (2)
  1. APIDRA [Suspect]
  2. HUMALOG [Suspect]

REACTIONS (1)
  - MEDICATION ERROR [None]
